FAERS Safety Report 4708918-7 (Version None)
Quarter: 2005Q3

REPORT INFORMATION
  Report Type: 
  Country: None (occurrence: None)
  Receive Date: 20050707
  Receipt Date: 20050627
  Transmission Date: 20060218
  Serious: Yes (Hospitalization, Disabling, Other)
  Sender: FDA-Public Use
  Company Number: 2005011735

PATIENT
  Age: 65 Year
  Sex: Female

DRUGS (15)
  1. BEXTRA [Suspect]
     Indication: OSTEOARTHRITIS
     Dosage: 20 MG (20 MG, 1 IN 1 D),ORAL
     Route: 048
     Dates: start: 20020911, end: 20041226
  2. SYNTHROID [Concomitant]
  3. FUROSEMIDE [Concomitant]
  4. ASPIRIN [Concomitant]
  5. PAXIL CR [Concomitant]
  6. ZYRTEC [Concomitant]
  7. FOSAMAX [Concomitant]
  8. CALCIUM (CALCIUM) [Concomitant]
  9. LOPRESSOR [Concomitant]
  10. FISH OIL (FISH OIL) [Concomitant]
  11. VITAMIN B12 (VITAMIN B12) [Concomitant]
  12. FERROUS GLUCONATE (FERROUS GLUCONATE) [Concomitant]
  13. LISINOPRIL [Concomitant]
  14. PREMARIN [Concomitant]
  15. PREVACID [Concomitant]

REACTIONS (3)
  - CEREBRAL INFARCTION [None]
  - CEREBROVASCULAR ACCIDENT [None]
  - HAEMORRHAGE INTRACRANIAL [None]
